FAERS Safety Report 7237580-7 (Version None)
Quarter: 2011Q1

REPORT INFORMATION
  Report Type: 
  Country: None (occurrence: None)
  Receive Date: 20110112
  Receipt Date: 20101231
  Transmission Date: 20110831
  Serious: Yes (Other)
  Sender: FDA-Public Use
  Company Number: GB-1184534

PATIENT
  Age: 75 Year
  Sex: Female

DRUGS (8)
  1. DEXAMETHASONE (DEXAMETHASONE) 0.1 % OPHTHALMIC SUSPENSION EYE DROPS, S [Suspect]
     Indication: PROPHYLAXIS
     Dosage: QID OPHTHALMIC
     Route: 047
  2. GENTAMICIN SULFATE [Suspect]
     Indication: KERATITIS FUNGAL
     Dosage: OPHTHALMIC
     Route: 047
  3. CEFUROXIME [Suspect]
     Indication: KERATITIS FUNGAL
  4. AMPHOTERICIN B [Suspect]
     Indication: PROPHYLAXIS
  5. FLUCONAZOLE [Suspect]
     Indication: KERATITIS FUNGAL
     Dosage: OPHTHALMIC
     Route: 047
  6. VORICONAZOLE [Suspect]
     Indication: KERATITIS FUNGAL
     Dosage: 200 MG BID, 400 MG LOADING ORAL
     Route: 048
  7. ITRACONAZOLE [Suspect]
     Indication: KERATITIS FUNGAL
     Dosage: 100 MG BID ORAL
     Route: 048
  8. OFLOXACIN [Suspect]
     Indication: KERATITIS FUNGAL
     Dosage: OPHTHALMIC
     Route: 047

REACTIONS (1)
  - KERATITIS FUNGAL [None]
